FAERS Safety Report 12476719 (Version 3)
Quarter: 2016Q3

REPORT INFORMATION
  Report Type: Spontaneous
  Country: US (occurrence: US)
  Receive Date: 20160617
  Receipt Date: 20160803
  Transmission Date: 20161109
  Serious: Yes (Hospitalization)
  Sender: FDA-Public Use
  Company Number: US-SA-2016SA109486

PATIENT
  Age: 48 Year
  Sex: Female

DRUGS (2)
  1. ENOXAPARIN SODIUM - WINTHROP [Suspect]
     Active Substance: ENOXAPARIN SODIUM
     Indication: SURGERY
     Dosage: START DATE ABOUT 2 MONTHS AGO?STOP DATE ABOUT 1 MONTH AGO
     Route: 051
  2. ENOXAPARIN SODIUM - WINTHROP [Suspect]
     Active Substance: ENOXAPARIN SODIUM
     Indication: SURGERY
     Dosage: START DATE ABOUT 2 MONTHS AGO?STOP DATE ABOUT 1 MONTH AGO
     Route: 051

REACTIONS (3)
  - Needle issue [Unknown]
  - Pain [Not Recovered/Not Resolved]
  - Injury associated with device [Not Recovered/Not Resolved]
